FAERS Safety Report 25163640 (Version 1)
Quarter: 2025Q2

REPORT INFORMATION
  Report Type: Spontaneous
  Country: CA (occurrence: CA)
  Receive Date: 20250405
  Receipt Date: 20250405
  Transmission Date: 20250716
  Serious: Yes (Hospitalization)
  Sender: ACCORD
  Company Number: None

PATIENT
  Age: 81 Year
  Sex: Male

DRUGS (1)
  1. METHOTREXATE SODIUM [Suspect]
     Active Substance: METHOTREXATE SODIUM
     Indication: Necrotising myositis
     Route: 058

REACTIONS (3)
  - Dysphagia [Unknown]
  - Off label use [Unknown]
  - Drug ineffective for unapproved indication [Unknown]
